FAERS Safety Report 11443116 (Version 1)
Quarter: 2015Q3

REPORT INFORMATION
  Report Type: Spontaneous
  Country: US (occurrence: US)
  Receive Date: 20150901
  Receipt Date: 20150901
  Transmission Date: 20151125
  Serious: Yes (Hospitalization, Other)
  Sender: FDA-Public Use
  Company Number: US-GLAXOSMITHKLINE-US2015124636

PATIENT
  Age: 60 Year
  Sex: Female

DRUGS (9)
  1. AMLODIPINE [Concomitant]
     Active Substance: AMLODIPINE BESYLATE
  2. BUDESONIDE. [Concomitant]
     Active Substance: BUDESONIDE
  3. SINGULAIR [Concomitant]
     Active Substance: MONTELUKAST SODIUM
  4. ADVAIR DISKUS [Suspect]
     Active Substance: FLUTICASONE PROPIONATE\SALMETEROL XINAFOATE
     Indication: ASTHMA
     Dosage: 250/50 MCG 1 PUFF, QD
     Route: 055
     Dates: start: 2000
  5. BENAZEPRIL [Concomitant]
     Active Substance: BENAZEPRIL HYDROCHLORIDE
  6. XARELTO [Concomitant]
     Active Substance: RIVAROXABAN
  7. ZOLOFT [Concomitant]
     Active Substance: SERTRALINE HYDROCHLORIDE
  8. PROVENTIL [Concomitant]
     Active Substance: ALBUTEROL
  9. NASALCROM [Concomitant]
     Active Substance: CROMOLYN SODIUM

REACTIONS (6)
  - Ankle fracture [Recovering/Resolving]
  - Treatment noncompliance [Not Recovered/Not Resolved]
  - Emergency care [Unknown]
  - Pulmonary embolism [Recovered/Resolved]
  - Inability to afford medication [Not Recovered/Not Resolved]
  - Underdose [Not Recovered/Not Resolved]

NARRATIVE: CASE EVENT DATE: 201502
